FAERS Safety Report 9298447 (Version 5)
Quarter: 2013Q3

REPORT INFORMATION
  Report Type: Report from Study
  Country: DE (occurrence: DE)
  Receive Date: 20130520
  Receipt Date: 20130726
  Transmission Date: 20140515
  Serious: Yes (Hospitalization)
  Sender: FDA-Public Use
  Company Number: DE-ABBOTT-13P-062-1090239-00

PATIENT
  Sex: Female
  Weight: 60 kg

DRUGS (9)
  1. HUMIRA [Suspect]
     Indication: CROHN^S DISEASE
     Route: 058
     Dates: start: 20070910, end: 201210
  2. HUMIRA [Suspect]
     Route: 058
     Dates: start: 201303
  3. AZATHIOPRINE [Concomitant]
     Indication: CROHN^S DISEASE
  4. PANTOZOL [Concomitant]
     Indication: PRODUCT USED FOR UNKNOWN INDICATION
  5. NOVAMINSULFON [Concomitant]
     Indication: PRODUCT USED FOR UNKNOWN INDICATION
  6. VITAMIN B12 [Concomitant]
     Indication: PRODUCT USED FOR UNKNOWN INDICATION
  7. SULFASALAZINE [Concomitant]
     Indication: CROHN^S DISEASE
  8. BUDESONID [Concomitant]
     Indication: CROHN^S DISEASE
  9. SYSTEMIC STEROID [Concomitant]
     Indication: CROHN^S DISEASE

REACTIONS (2)
  - Ileus [Recovered/Resolved]
  - Intestinal stenosis [Recovered/Resolved]
